FAERS Safety Report 5381383-5 (Version None)
Quarter: 2007Q3

REPORT INFORMATION
  Report Type: 
  Country: None (occurrence: None)
  Receive Date: 20070709
  Receipt Date: 20070628
  Transmission Date: 20080115
  Serious: Yes (Other)
  Sender: FDA-Public Use
  Company Number: US-KINGPHARMUSA00001-K200700577

PATIENT

DRUGS (6)
  1. SONATA [Suspect]
  2. NUMEROUS PRESCRIBED MEDS [Concomitant]
  3. AMBIEN [Suspect]
  4. ALCOHOL                            /00002101/ [Suspect]
     Dosage: HALF BOTTLE OF WINE FIVE TO SIX HOURS PRIOR TO DRIVING
     Route: 048
     Dates: start: 20060410, end: 20060410
  5. TOPROL-XL [Concomitant]
  6. LUNESTA [Suspect]

REACTIONS (7)
  - ABNORMAL SLEEP-RELATED EVENT [None]
  - ALCOHOL USE [None]
  - CONFUSIONAL STATE [None]
  - IMPAIRED DRIVING ABILITY [None]
  - MEDICAL OBSERVATION ABNORMAL [None]
  - OCULAR HYPERAEMIA [None]
  - ROAD TRAFFIC ACCIDENT [None]
